FAERS Safety Report 6074485-1 (Version None)
Quarter: 2009Q1

REPORT INFORMATION
  Report Type: 
  Country: None (occurrence: None)
  Receive Date: 20090206
  Receipt Date: 20090107
  Transmission Date: 20090719
  Serious: Yes (Hospitalization)
  Sender: FDA-Public Use
  Company Number: 230012K09CAN

PATIENT
  Sex: Female

DRUGS (10)
  1. REBIF [Suspect]
     Indication: RELAPSING-REMITTING MULTIPLE SCLEROSIS
     Dosage: 44 MCG, 3 IN 1 WEEKS
     Dates: start: 20061220
  2. SIMVASTATIN [Concomitant]
  3. SYNTHROID [Concomitant]
  4. PANTOPRAZOLE SODIUM [Concomitant]
  5. EFFEXOR [Concomitant]
  6. DIOVAN [Concomitant]
  7. PERINDOPRIL ERBUMINE [Concomitant]
  8. FLONASE [Concomitant]
  9. SALBUTAMOL (SALBUTAMOL /00139501/) [Concomitant]
  10. ASPIRIN [Concomitant]

REACTIONS (4)
  - DEHYDRATION [None]
  - DIARRHOEA [None]
  - HALLUCINATION [None]
  - HYPOTENSION [None]
